FAERS Safety Report 11780664 (Version 3)
Quarter: 2015Q4

REPORT INFORMATION
  Report Type: Spontaneous
  Country: CN (occurrence: CN)
  Receive Date: 20151126
  Receipt Date: 20151214
  Transmission Date: 20160305
  Serious: Yes (Death, Hospitalization)
  Sender: FDA-Public Use
  Company Number: CN-ROCHE-1666577

PATIENT
  Age: 60 Year
  Sex: Male

DRUGS (1)
  1. XELODA [Suspect]
     Active Substance: CAPECITABINE
     Indication: RECTAL CANCER
     Route: 048
     Dates: start: 20151109, end: 20151113

REACTIONS (6)
  - Mouth ulceration [Unknown]
  - Diarrhoea [Unknown]
  - Peripheral swelling [Unknown]
  - Multi-organ failure [Fatal]
  - Palmar-plantar erythrodysaesthesia syndrome [Unknown]
  - Bone marrow failure [Unknown]

NARRATIVE: CASE EVENT DATE: 20151113
